FAERS Safety Report 20087366 (Version 1)
Quarter: 2021Q4

REPORT INFORMATION
  Report Type: Spontaneous
  Country: US (occurrence: None)
  Receive Date: 20211118
  Receipt Date: 20211118
  Transmission Date: 20220303
  Serious: No
  Sender: FDA-Public Use
  Company Number: None

PATIENT
  Age: 48 Year
  Sex: Female
  Weight: 95.3 kg

DRUGS (8)
  1. FOSAPREPITANT [Suspect]
     Active Substance: FOSAPREPITANT
     Indication: Nausea
     Dosage: OTHER FREQUENCY : ONCE;?
     Route: 042
     Dates: start: 20211108, end: 20211108
  2. Decadron 4 mg/ml - 10 mg IV (premed) [Concomitant]
     Dates: start: 20211108
  3. Oxaliplatin 275 mg in Dextrose 5% IVPB [Concomitant]
     Dates: start: 20211108
  4. palonosetron 0.25 mg IV (premed) [Concomitant]
     Dates: start: 20211108
  5. CAPECITABINE [Concomitant]
     Active Substance: CAPECITABINE
     Dates: start: 20211025
  6. Zofran 8 mg [Concomitant]
     Dates: start: 20211025
  7. Olmesartan-HCTZ 20-12.5mg [Concomitant]
     Dates: start: 20210702
  8. FERUMOXYTOL [Concomitant]
     Active Substance: FERUMOXYTOL
     Dates: start: 20211004, end: 20211004

REACTIONS (3)
  - Nausea [None]
  - Chest discomfort [None]
  - Malaise [None]

NARRATIVE: CASE EVENT DATE: 20211108
